FAERS Safety Report 4381235-3 (Version None)
Quarter: 2004Q2

REPORT INFORMATION
  Report Type: 
  Country: None (occurrence: None)
  Receive Date: 20040616
  Receipt Date: 20040601
  Transmission Date: 20050107
  Serious: Yes (Hospitalization)
  Sender: FDA-Public Use
  Company Number: 200306281

PATIENT
  Age: 58 Year
  Sex: Male

DRUGS (13)
  1. BOTOX [Suspect]
     Indication: TORTICOLLIS
     Dosage: 280 UNITS PRN IM
     Route: 030
     Dates: start: 20001201
  2. BOTOX [Suspect]
     Indication: TORTICOLLIS
     Dates: start: 20000101
  3. OXYCONTIN [Concomitant]
  4. BACLOFEN [Concomitant]
  5. ATENOLOL [Concomitant]
  6. GAVISIL [Concomitant]
  7. PROTONIX [Concomitant]
  8. RANIDINE [Concomitant]
  9. VALIUM [Concomitant]
  10. ZONEGRAN [Concomitant]
  11. PANTAS [Concomitant]
  12. ZANTAC [Concomitant]
  13. OXYGEN [Concomitant]

REACTIONS (12)
  - ABASIA [None]
  - AGITATION [None]
  - DISEASE PROGRESSION [None]
  - DRUG EFFECT DECREASED [None]
  - DYSPHAGIA [None]
  - DYSPNOEA [None]
  - INJECTION SITE ATROPHY [None]
  - INJECTION SITE REACTION [None]
  - MUSCLE ATROPHY [None]
  - MUSCULAR WEAKNESS [None]
  - TRANSIENT ISCHAEMIC ATTACK [None]
  - URINARY RETENTION [None]
